FAERS Safety Report 19456191 (Version 3)
Quarter: 2021Q3

REPORT INFORMATION
  Report Type: Report from Study
  Country: None (occurrence: PR)
  Receive Date: 20210624
  Receipt Date: 20210914
  Transmission Date: 20211014
  Serious: Yes (Hospitalization, Other)
  Sender: FDA-Public Use
  Company Number: PR-ABBVIE-21K-131-3962181-00

PATIENT
  Age: 59 Year
  Sex: Female
  Weight: 68.1 kg

DRUGS (4)
  1. HUMIRA [Suspect]
     Active Substance: ADALIMUMAB
     Indication: RHEUMATOID ARTHRITIS
     Route: 058
     Dates: start: 20141024
  2. CIPRO [Suspect]
     Active Substance: CIPROFLOXACIN HYDROCHLORIDE
     Indication: PRODUCT USED FOR UNKNOWN INDICATION
     Route: 065
  3. CX?024414. [Concomitant]
     Active Substance: CX-024414
     Indication: COVID-19
     Route: 030
     Dates: start: 20210426, end: 20210426
  4. CX?024414. [Concomitant]
     Active Substance: CX-024414
     Route: 030
     Dates: start: 20210524, end: 20210524

REACTIONS (8)
  - Drug hypersensitivity [Recovered/Resolved]
  - Drug hypersensitivity [Recovered/Resolved]
  - Blood glucose decreased [Recovering/Resolving]
  - Nasopharyngitis [Recovered/Resolved]
  - Neck pain [Not Recovered/Not Resolved]
  - Dermatitis allergic [Recovered/Resolved]
  - Abdominal discomfort [Not Recovered/Not Resolved]
  - Chronic sinusitis [Recovered/Resolved]

NARRATIVE: CASE EVENT DATE: 202106
